FAERS Safety Report 4638563-3 (Version None)
Quarter: 2005Q2

REPORT INFORMATION
  Report Type: 
  Country: None (occurrence: None)
  Receive Date: 20050419
  Receipt Date: 20050405
  Transmission Date: 20051028
  Serious: Yes (Other)
  Sender: FDA-Public Use
  Company Number: AT-JNJFOC-20050204769

PATIENT
  Age: 60 Year
  Weight: 50 kg

DRUGS (5)
  1. REMICADE [Suspect]
     Route: 042
  2. REMICADE [Suspect]
     Indication: CROHN'S DISEASE
     Route: 042
  3. AZATHIOPRINE [Concomitant]
     Indication: CROHN'S DISEASE
     Route: 049
  4. CORTISONE [Concomitant]
  5. LANSOPRAZOLE [Concomitant]
     Indication: GASTRITIS
     Route: 049

REACTIONS (1)
  - CARPAL TUNNEL SYNDROME [None]
